FAERS Safety Report 5124287-5 (Version None)
Quarter: 2006Q4

REPORT INFORMATION
  Report Type: 
  Country: None (occurrence: None)
  Receive Date: 20060816
  Receipt Date: 20060505
  Transmission Date: 20070319
  Serious: No
  Sender: FDA-Public Use
  Company Number: US200605001518

PATIENT
  Age: 79 Year
  Sex: Male

DRUGS (3)
  1. CIALIS [Suspect]
     Indication: ERECTILE DYSFUNCTION
     Dosage: 20 MG
     Route: 065
     Dates: start: 20060401
  2. PROZAC [Suspect]
  3. LISINOPRIL [Concomitant]

REACTIONS (1)
  - DIARRHOEA [None]
